FAERS Safety Report 4847541-0 (Version None)
Quarter: 2005Q4

REPORT INFORMATION
  Report Type: 
  Country: None (occurrence: None)
  Receive Date: 20051205
  Receipt Date: 20051122
  Transmission Date: 20060501
  Serious: Yes (Hospitalization)
  Sender: FDA-Public Use
  Company Number: HQWYE724429NOV05

PATIENT
  Age: 56 Year
  Sex: Male

DRUGS (2)
  1. MINOCYCLINE HCL [Suspect]
     Indication: ENTERITIS INFECTIOUS
     Dosage: 100 MG
     Route: 048
     Dates: start: 20051121, end: 20051121
  2. BIOFERMIN R                  (STREPTOCOCCUS FAECALIS) [Concomitant]

REACTIONS (1)
  - SHOCK [None]
